FAERS Safety Report 8552646-7 (Version None)
Quarter: 2012Q3

REPORT INFORMATION
  Report Type: 
  Country: None (occurrence: None)
  Receive Date: 20120731
  Receipt Date: 20120726
  Transmission Date: 20120928
  Serious: No
  Sender: FDA-Public Use
  Company Number: US-PFIZER INC-2012181770

PATIENT
  Sex: Female
  Weight: 119 kg

DRUGS (5)
  1. PROTONIX [Suspect]
     Dosage: 40 MG, 2X/DAY
     Dates: start: 20110301
  2. PROTONIX [Suspect]
     Indication: GASTROOESOPHAGEAL REFLUX DISEASE
     Dosage: UNK
  3. FENTANYL [Concomitant]
     Dosage: UNK
  4. HYDROCORTISONE [Suspect]
     Dosage: 100 MG, UNK
  5. NORVASC [Suspect]
     Indication: HYPERTENSION
     Dosage: 5 MG, DAILY
     Dates: start: 20030101

REACTIONS (3)
  - ANAEMIA [None]
  - ARTHRITIS [None]
  - WHITE BLOOD CELL COUNT INCREASED [None]
